FAERS Safety Report 8859494 (Version 2)
Quarter: 2012Q4

REPORT INFORMATION
  Report Type: Report from Study
  Country: JP (occurrence: JP)
  Receive Date: 20121024
  Receipt Date: 20121129
  Transmission Date: 20130627
  Serious: Yes (Hospitalization)
  Sender: FDA-Public Use
  Company Number: PHHY2012JP094638

PATIENT
  Age: 53 Year
  Sex: Male
  Weight: 77 kg

DRUGS (10)
  1. LEPONEX / CLOZARIL [Suspect]
     Indication: SCHIZOPHRENIA, DISORGANISED TYPE
     Dosage: 12.5 mg, UNK
     Route: 048
     Dates: start: 20120411, end: 20120411
  2. LEPONEX / CLOZARIL [Suspect]
     Dosage: 25 mg, UNK
     Route: 048
     Dates: start: 20120412, end: 20120414
  3. LEPONEX / CLOZARIL [Suspect]
     Dosage: 50 mg, UNK
     Route: 048
     Dates: start: 20120415, end: 20120417
  4. LEPONEX / CLOZARIL [Suspect]
     Dosage: 75 mg, UNK
     Route: 048
     Dates: start: 20120418, end: 20120424
  5. LEPONEX / CLOZARIL [Suspect]
     Dosage: 100 mg, UNK
     Route: 048
     Dates: start: 20120425, end: 20120501
  6. LEPONEX / CLOZARIL [Suspect]
     Dosage: 125 mg, UNK
     Route: 048
     Dates: start: 20120502, end: 20120502
  7. URSODEOXYCHOLIC ACID [Concomitant]
     Dosage: 300 mg, UNK
     Route: 048
  8. EPADEL [Concomitant]
     Dosage: 1800 mg, UNK
     Route: 048
  9. DORAL [Concomitant]
     Indication: SCHIZOPHRENIA, DISORGANISED TYPE
     Dosage: 20 mg, UNK
     Route: 048
     Dates: start: 20120411
  10. NESINA [Concomitant]
     Dosage: 12.5 mg, QD
     Route: 048
     Dates: end: 20120918

REACTIONS (3)
  - C-reactive protein increased [Recovered/Resolved]
  - Blood glucose increased [Recovered/Resolved]
  - Pyrexia [Recovered/Resolved]
